FAERS Safety Report 6371570-1 (Version None)
Quarter: 2009Q3

REPORT INFORMATION
  Report Type: 
  Country: None (occurrence: None)
  Receive Date: 20090923
  Receipt Date: 20080418
  Transmission Date: 20100115
  Serious: Yes (Hospitalization)
  Sender: FDA-Public Use
  Company Number: US-ASTRAZENECA-2007UW24318

PATIENT
  Age: 21277 Day
  Sex: Male
  Weight: 101.6 kg

DRUGS (8)
  1. SEROQUEL [Suspect]
     Indication: ANXIETY
     Dosage: 800 MG- 1000 MG
     Route: 048
     Dates: start: 20050801, end: 20060301
  2. SEROQUEL [Suspect]
     Route: 048
     Dates: start: 20050902
  3. LISINOPRIL [Concomitant]
     Route: 048
     Dates: start: 20060821
  4. HYTRIN [Concomitant]
     Route: 048
     Dates: start: 20070313
  5. METOPROLOL TARTRATE [Concomitant]
     Route: 048
     Dates: start: 20060727
  6. MAXZIDE [Concomitant]
     Dosage: 37.5 / 25 MG ONE EVERY MORNING
     Route: 048
     Dates: start: 20050821
  7. LEVOTHROID [Concomitant]
     Dates: start: 20010802
  8. ASPIRIN [Concomitant]
     Route: 048
     Dates: start: 20030723

REACTIONS (4)
  - DIABETES MELLITUS [None]
  - HYPERGLYCAEMIC HYPEROSMOLAR NONKETOTIC SYNDROME [None]
  - TYPE 1 DIABETES MELLITUS [None]
  - TYPE 2 DIABETES MELLITUS [None]
